FAERS Safety Report 7585708-1 (Version None)
Quarter: 2011Q3

REPORT INFORMATION
  Report Type: 
  Country: None (occurrence: None)
  Receive Date: 20110701
  Receipt Date: 20110622
  Transmission Date: 20111222
  Serious: Yes (Hospitalization)
  Sender: FDA-Public Use
  Company Number: FR-SANOFI-AVENTIS-2011SA039488

PATIENT
  Age: 40 Year
  Sex: Male

DRUGS (9)
  1. URBANYL [Suspect]
     Indication: EPILEPSY
     Route: 048
     Dates: start: 20110103, end: 20110106
  2. ACETAMINOPHEN [Concomitant]
     Route: 048
     Dates: start: 20110105
  3. AUGMENTIN '125' [Suspect]
     Dosage: DOSE:1 UNIT(S)
     Route: 048
     Dates: start: 20110103, end: 20110107
  4. JANUVIA [Concomitant]
     Indication: TYPE 2 DIABETES MELLITUS
     Route: 065
     Dates: end: 20110101
  5. PHENYTOIN [Suspect]
     Indication: EPILEPSY
     Route: 048
     Dates: start: 20110102, end: 20110106
  6. METFORMIN HCL [Suspect]
     Indication: TYPE 2 DIABETES MELLITUS
     Route: 048
     Dates: start: 20110106
  7. ACETAMINOPHEN [Concomitant]
     Route: 042
     Dates: start: 20110102, end: 20110105
  8. LOVENOX [Suspect]
     Route: 051
     Dates: start: 20110104, end: 20110111
  9. KEPPRA [Suspect]
     Indication: EPILEPSY
     Route: 048

REACTIONS (4)
  - CHOLESTASIS [None]
  - LIPASE INCREASED [None]
  - HEPATIC ENZYME INCREASED [None]
  - PANCREATITIS [None]
